FAERS Safety Report 17046909 (Version 1)
Quarter: 2019Q4

REPORT INFORMATION
  Report Type: Spontaneous
  Country: US (occurrence: US)
  Receive Date: 20191119
  Receipt Date: 20191119
  Transmission Date: 20200122
  Serious: No
  Sender: FDA-Public Use
  Company Number: US-TEVA-2019-US-1139805

PATIENT
  Sex: Female

DRUGS (1)
  1. AJOVY [Suspect]
     Active Substance: FREMANEZUMAB-VFRM
     Indication: VESTIBULAR MIGRAINE
     Dates: start: 20191018

REACTIONS (7)
  - Nausea [Unknown]
  - Vertigo [Recovered/Resolved]
  - Malaise [Unknown]
  - Insomnia [Unknown]
  - Weight increased [Unknown]
  - Fatigue [Unknown]
  - Pain [Unknown]

NARRATIVE: CASE EVENT DATE: 2019
